FAERS Safety Report 23310848 (Version 1)
Quarter: 2023Q4

REPORT INFORMATION
  Report Type: Spontaneous
  Country: US (occurrence: US)
  Receive Date: 20231218
  Receipt Date: 20231218
  Transmission Date: 20240109
  Serious: No
  Sender: FDA-Public Use
  Company Number: US-ALKEM LABORATORIES LIMITED-US-ALKEM-2023-01443

PATIENT

DRUGS (4)
  1. MYCOPHENOLATE MOFETIL [Suspect]
     Active Substance: MYCOPHENOLATE MOFETIL
     Indication: Uveitis
     Dosage: 3 GRAM, QD (DAILY, STANDARD MAINTENANCE DOSE)
     Route: 065
  2. MYCOPHENOLATE MOFETIL [Suspect]
     Active Substance: MYCOPHENOLATE MOFETIL
     Dosage: 1-2 G DAILY (REDUCED MAINTENANCE DOSE)
     Route: 065
  3. METHOTREXATE [Suspect]
     Active Substance: METHOTREXATE
     Indication: Uveitis
     Dosage: 25 MILLIGRAM, ONCE WEEKLY (STANDARD MAINTENANCE DOSE)
     Route: 065
  4. METHOTREXATE [Suspect]
     Active Substance: METHOTREXATE
     Dosage: 15-20 MG WEEKLY, (REDUCED MAINTENANCE DOSE)
     Route: 065

REACTIONS (1)
  - Laboratory test abnormal [Recovering/Resolving]
